FAERS Safety Report 12548025 (Version 1)
Quarter: 2016Q3

REPORT INFORMATION
  Report Type: Spontaneous
  Country: US (occurrence: None)
  Receive Date: 20160711
  Receipt Date: 20160711
  Transmission Date: 20161109
  Serious: Yes (Disabling, Other)
  Sender: FDA-Public Use
  Company Number: None

PATIENT
  Age: 30 Year
  Sex: Female
  Weight: 73.94 kg

DRUGS (7)
  1. CANNABIS [Concomitant]
     Active Substance: CANNABIS SATIVA SUBSP. INDICA TOP
  2. CIPROFLAXIN [Suspect]
     Active Substance: CIPROFLOXACIN
     Indication: URINARY TRACT INFECTION
     Route: 048
     Dates: start: 20160707, end: 20160708
  3. CIPROFLAXIN [Suspect]
     Active Substance: CIPROFLOXACIN
     Indication: RENAL DISORDER
     Route: 048
     Dates: start: 20160707, end: 20160708
  4. NAPROXEN SODIUM. [Concomitant]
     Active Substance: NAPROXEN SODIUM
  5. URICALM MAXIMUM STRENGTH [Concomitant]
     Active Substance: PHENAZOPYRIDINE HYDROCHLORIDE
  6. CIPROFLAXIN [Suspect]
     Active Substance: CIPROFLOXACIN
     Indication: BLADDER DISORDER
     Route: 048
     Dates: start: 20160707, end: 20160708
  7. FLEXERIL [Concomitant]
     Active Substance: CYCLOBENZAPRINE HYDROCHLORIDE

REACTIONS (8)
  - Fluid intake reduced [None]
  - Dysphagia [None]
  - Toxicity to various agents [None]
  - Mastication disorder [None]
  - Torticollis [None]
  - Mental impairment [None]
  - Visual impairment [None]
  - Depressed level of consciousness [None]

NARRATIVE: CASE EVENT DATE: 20160708
